FAERS Safety Report 4824528-5 (Version None)
Quarter: 2005Q4

REPORT INFORMATION
  Report Type: 
  Country: None (occurrence: None)
  Receive Date: 20051108
  Receipt Date: 20051021
  Transmission Date: 20060501
  Serious: Yes (Other)
  Sender: FDA-Public Use
  Company Number: EWC051046375

PATIENT
  Age: 60 Year
  Sex: Female

DRUGS (2)
  1. EVISTA [Suspect]
     Indication: OSTEOPOROSIS
     Dosage: 60 MG /1 DAY
     Dates: start: 20050927, end: 20051008
  2. CIPRALEX(ESCITALOPRAM OXALATE) [Concomitant]

REACTIONS (1)
  - HYPERSENSITIVITY [None]
